FAERS Safety Report 9344887 (Version 2)
Quarter: 2013Q3

REPORT INFORMATION
  Report Type: Report from Study
  Country: US (occurrence: US)
  Receive Date: 20130612
  Receipt Date: 20130926
  Transmission Date: 20140515
  Serious: Yes (Other)
  Sender: FDA-Public Use
  Company Number: US-GLAXOSMITHKLINE-Z0018707A

PATIENT
  Age: 58 Year
  Sex: Male
  Weight: 130.3 kg

DRUGS (9)
  1. TRAMETINIB [Suspect]
     Indication: MALIGNANT MELANOMA
     Dosage: 2MG PER DAY
     Route: 048
     Dates: start: 20121210
  2. DABRAFENIB [Suspect]
     Indication: MALIGNANT MELANOMA
     Dosage: 150MG TWICE PER DAY
     Route: 048
     Dates: start: 20121210
  3. ACTOS [Concomitant]
     Indication: DIABETES MELLITUS
     Dosage: 45MG PER DAY
     Route: 048
     Dates: start: 20121114
  4. ADVAIR DISKUS [Concomitant]
     Indication: CHRONIC OBSTRUCTIVE PULMONARY DISEASE
     Dosage: 250MCG AS REQUIRED
     Route: 055
     Dates: start: 20121114
  5. CRESTOR [Concomitant]
     Indication: HYPERCHOLESTEROLAEMIA
     Dosage: 5MG PER DAY
     Route: 048
     Dates: start: 20121114
  6. GABAPENTIN [Concomitant]
     Indication: DIABETES MELLITUS
     Dosage: 800MG TWICE PER DAY
     Route: 048
     Dates: start: 20121114
  7. GLYBURIDE [Concomitant]
     Indication: DIABETES MELLITUS
     Dosage: 5MG TWICE PER DAY
     Route: 048
     Dates: start: 20121114
  8. LANTUS [Concomitant]
     Indication: DIABETES MELLITUS
     Dosage: 100UNIT TWENTY FOUR TIMES PER DAY
     Route: 060
     Dates: start: 20121114
  9. OXYCODONE [Concomitant]
     Indication: BACK PAIN
     Dosage: 10MG AS REQUIRED
     Route: 048
     Dates: start: 20121114

REACTIONS (1)
  - Pyrexia [Recovered/Resolved]
